FAERS Safety Report 18666722 (Version 2)
Quarter: 2021Q1

REPORT INFORMATION
  Report Type: Report from Study
  Country: None (occurrence: US)
  Receive Date: 20201227
  Receipt Date: 20210211
  Transmission Date: 20210419
  Serious: Yes (Hospitalization, Other)
  Sender: FDA-Public Use
  Company Number: US-ABBVIE-20K-163-3485573-00

PATIENT
  Age: 69 Year
  Sex: Female
  Weight: 48.12 kg

DRUGS (2)
  1. HUMIRA [Suspect]
     Active Substance: ADALIMUMAB
     Indication: ANKYLOSING SPONDYLITIS
     Route: 058
     Dates: start: 201511
  2. HUMIRA [Suspect]
     Active Substance: ADALIMUMAB
     Indication: RHEUMATOID ARTHRITIS

REACTIONS (3)
  - Aortic aneurysm [Recovering/Resolving]
  - Intestinal obstruction [Recovering/Resolving]
  - Abdominal adhesions [Unknown]

NARRATIVE: CASE EVENT DATE: 20201127
